FAERS Safety Report 12370333 (Version 1)
Quarter: 2016Q2

REPORT INFORMATION
  Report Type: Spontaneous
  Country: US (occurrence: US)
  Receive Date: 20160516
  Receipt Date: 20160516
  Transmission Date: 20160815
  Serious: No
  Sender: FDA-Public Use
  Company Number: US-009507513-1604USA016779

PATIENT
  Sex: Female

DRUGS (12)
  1. ABRAXANE [Concomitant]
     Active Substance: PACLITAXEL
  2. ACETAMINOPHEN. [Concomitant]
     Active Substance: ACETAMINOPHEN
  3. PALONOSETRON HYDROCHLORIDE. [Concomitant]
     Active Substance: PALONOSETRON HYDROCHLORIDE
  4. EMEND [Suspect]
     Active Substance: APREPITANT
     Indication: PROPHYLAXIS OF NAUSEA AND VOMITING
     Dosage: SDV, MDV OR ADDITIVE (150 MG, UNK (UNSPECIFIED FREQUENCY))
     Route: 042
     Dates: start: 20150519, end: 20160324
  5. CARBOPLATIN. [Concomitant]
     Active Substance: CARBOPLATIN
  6. DEXAMETHASONE. [Concomitant]
     Active Substance: DEXAMETHASONE
  7. DOCETAXEL. [Concomitant]
     Active Substance: DOCETAXEL
  8. PACLITAXEL. [Concomitant]
     Active Substance: PACLITAXEL
  9. ONDANSETRON HYDROCHLORIDE. [Concomitant]
     Active Substance: ONDANSETRON HYDROCHLORIDE
  10. DIPHENHYDRAMINE. [Concomitant]
     Active Substance: DIPHENHYDRAMINE
  11. FAMOTIDINE. [Concomitant]
     Active Substance: FAMOTIDINE
  12. GEMCITABINE [Concomitant]
     Active Substance: GEMCITABINE\GEMCITABINE HYDROCHLORIDE

REACTIONS (10)
  - Fatigue [Unknown]
  - Heart rate irregular [Unknown]
  - Hypoaesthesia [Unknown]
  - Paraesthesia [Unknown]
  - Nausea [Unknown]
  - Constipation [Unknown]
  - Swelling [Unknown]
  - Hypotension [Unknown]
  - Heart rate increased [Unknown]
  - Malaise [Unknown]
